FAERS Safety Report 16358674 (Version 1)
Quarter: 2019Q2

REPORT INFORMATION
  Report Type: Spontaneous
  Country: US (occurrence: US)
  Receive Date: 20190527
  Receipt Date: 20190527
  Transmission Date: 20190711
  Serious: No
  Sender: FDA-Public Use
  Company Number: US-ALKERMES INC.-ALK-2019-002733

PATIENT
  Age: 20 Year
  Sex: Male
  Weight: 108.84 kg

DRUGS (1)
  1. ARISTADA [Suspect]
     Active Substance: ARIPIPRAZOLE LAUROXIL
     Indication: SCHIZOPHRENIA
     Dosage: UNK, Q2MO
     Route: 030
     Dates: start: 201903

REACTIONS (5)
  - Hallucination, visual [Recovering/Resolving]
  - Insomnia [Recovering/Resolving]
  - Loss of employment [Not Recovered/Not Resolved]
  - Fear of crowded places [Recovering/Resolving]
  - Schizophrenia [Recovering/Resolving]

NARRATIVE: CASE EVENT DATE: 201905
